FAERS Safety Report 4697015-5 (Version None)
Quarter: 2005Q2

REPORT INFORMATION
  Report Type: 
  Country: None (occurrence: None)
  Receive Date: 20050620
  Receipt Date: 20050318
  Transmission Date: 20051028
  Serious: No
  Sender: FDA-Public Use
  Company Number: US-YAMANOUCHI-YPA20050143

PATIENT
  Age: 82 Year
  Sex: Male

DRUGS (6)
  1. VESICARE [Suspect]
     Indication: HYPERTONIC BLADDER
     Dosage: 5 MG UNK PO
     Route: 048
     Dates: start: 20050313
  2. DITROPAN XL [Concomitant]
  3. ASPIRIN [Concomitant]
  4. AMATODIONE [Concomitant]
  5. CARBIDOPA [Concomitant]
  6. CEREFOLIN [Concomitant]

REACTIONS (1)
  - HALLUCINATION [None]
